FAERS Safety Report 5975043-7 (Version None)
Quarter: 2008Q4

REPORT INFORMATION
  Report Type: 
  Country: None (occurrence: None)
  Receive Date: 20081128
  Receipt Date: 20081118
  Transmission Date: 20090506
  Serious: Yes (Hospitalization, Other)
  Sender: FDA-Public Use
  Company Number: 20085658

PATIENT
  Age: 45 Year
  Sex: Male

DRUGS (10)
  1. LIORESAL [Suspect]
     Indication: MUSCLE SPASTICITY
     Dosage: 50 MCG, DAILY, INTRATHECAL
     Route: 037
     Dates: start: 20080101
  2. NEXIUM [Concomitant]
  3. TILIDIN [Concomitant]
  4. MIRTAZAPINE [Concomitant]
  5. TAMSULOSIN HCL [Concomitant]
  6. SPASMEX [Concomitant]
  7. SPASMEX [Concomitant]
  8. MOVICOL [Concomitant]
  9. LAXOBERAL [Concomitant]
  10. SAB SIMPLEX [Concomitant]

REACTIONS (5)
  - DEVICE MALFUNCTION [None]
  - MUSCLE SPASTICITY [None]
  - POST PROCEDURAL HAEMORRHAGE [None]
  - PULMONARY EMBOLISM [None]
  - WITHDRAWAL SYNDROME [None]
